FAERS Safety Report 7880638-X (Version None)
Quarter: 2011Q4

REPORT INFORMATION
  Report Type: 
  Country: None (occurrence: None)
  Receive Date: 20111101
  Receipt Date: 20111020
  Transmission Date: 20120403
  Serious: Yes (Death, Hospitalization, Other)
  Sender: FDA-Public Use
  Company Number: RU-BRISTOL-MYERS SQUIBB COMPANY-16158826

PATIENT
  Age: 87 Year
  Sex: Male

DRUGS (3)
  1. SAXAGLIPTIN [Suspect]
     Indication: TYPE 2 DIABETES MELLITUS
     Dosage: LAST DOSE ON 08OCT2011
     Route: 048
     Dates: start: 20101104, end: 20111008
  2. PLACEBO [Suspect]
     Indication: TYPE 2 DIABETES MELLITUS
     Dosage: LAST DOSE ON 08OCT2011
     Route: 048
     Dates: start: 20101104, end: 20111008
  3. GLICLAZIDE [Suspect]
     Indication: TYPE 2 DIABETES MELLITUS
     Dosage: START DATE BEFORE RANDOMIZATION

REACTIONS (2)
  - THROMBOCYTOPENIA [None]
  - BLADDER CANCER [None]
